FAERS Safety Report 8470438 (Version 2)
Quarter: 2013Q1

REPORT INFORMATION
  Report Type: Spontaneous
  Country: US (occurrence: US)
  Receive Date: 20120321
  Receipt Date: 20130312
  Transmission Date: 20140127
  Serious: No
  Sender: FDA-Public Use
  Company Number: US-BAUSCH-2011BL008062

PATIENT
  Age: 47 Year
  Sex: Male

DRUGS (1)
  1. DESMOPRESSIN ACETATE [Suspect]
     Indication: DIABETES INSIPIDUS
     Dosage: DAILY DOSE: 2 SPRAY
     Route: 045
     Dates: start: 20111114

REACTIONS (4)
  - Drug ineffective [Unknown]
  - Lip dry [Unknown]
  - Dry mouth [Unknown]
  - Pollakiuria [Unknown]
